FAERS Safety Report 21623737 (Version 1)
Quarter: 2022Q4

REPORT INFORMATION
  Report Type: Spontaneous
  Country: US (occurrence: None)
  Receive Date: 20221119
  Receipt Date: 20221119
  Transmission Date: 20230112
  Serious: No
  Sender: FDA-Public Use
  Company Number: None

PATIENT
  Sex: Female
  Weight: 55.34 kg

DRUGS (21)
  1. CYCLOPHOSPHAMIDE [Suspect]
     Active Substance: CYCLOPHOSPHAMIDE
     Indication: Plasma cell myeloma
     Dosage: OTHER FREQUENCY : D1,8 + 15;?
     Route: 048
     Dates: start: 202209
  2. AMOXICILLIN [Concomitant]
     Active Substance: AMOXICILLIN
  3. ASPIRIN [Concomitant]
     Active Substance: ASPIRIN
  4. BIOTIN [Concomitant]
     Active Substance: BIOTIN
  5. CALCIUM CARBONATE [Concomitant]
     Active Substance: CALCIUM CARBONATE
  6. DEXAMETHASONE [Concomitant]
     Active Substance: DEXAMETHASONE
  7. ELIQUIS [Concomitant]
     Active Substance: APIXABAN
  8. ESTRADIOL [Concomitant]
     Active Substance: ESTRADIOL
  9. FAMOTIDINE [Concomitant]
     Active Substance: FAMOTIDINE
  10. FISH OIL [Concomitant]
     Active Substance: FISH OIL
  11. LEVOTHYROXINE [Concomitant]
     Active Substance: LEVOTHYROXINE
  12. LISINOPRIL [Concomitant]
     Active Substance: LISINOPRIL
  13. MEDROXYPROGESTERONE [Concomitant]
     Active Substance: MEDROXYPROGESTERONE
  14. MULTIVITAMINS/MINERAL [Concomitant]
  15. SERTRALINE [Concomitant]
     Active Substance: SERTRALINE HYDROCHLORIDE
  16. TRAMADOL [Concomitant]
     Active Substance: TRAMADOL
  17. TYLENOL [Concomitant]
     Active Substance: ACETAMINOPHEN
  18. VALACYCLOVIR [Concomitant]
     Active Substance: VALACYCLOVIR HYDROCHLORIDE
  19. VICODIN [Concomitant]
     Active Substance: ACETAMINOPHEN\HYDROCODONE BITARTRATE
  20. XGEVA [Concomitant]
     Active Substance: DENOSUMAB
  21. ZOLPIDEM [Concomitant]
     Active Substance: ZOLPIDEM TARTRATE

REACTIONS (1)
  - Lymphocyte count decreased [None]
